FAERS Safety Report 5966867-0 (Version None)
Quarter: 2008Q4

REPORT INFORMATION
  Report Type: 
  Country: None (occurrence: None)
  Receive Date: 20081125
  Receipt Date: 20081120
  Transmission Date: 20090506
  Serious: Yes (Hospitalization)
  Sender: FDA-Public Use
  Company Number: US-GENENTECH-253853

PATIENT
  Sex: Female

DRUGS (5)
  1. BEVACIZUMAB [Suspect]
     Indication: BREAST CANCER
     Dosage: 560 MG, UNK
     Route: 042
     Dates: start: 20070129, end: 20070423
  2. ABRAXANE [Suspect]
     Indication: BREAST CANCER
     Dosage: 195 MG, UNK
     Route: 042
     Dates: start: 20070129, end: 20070423
  3. IMODIUM [Concomitant]
     Indication: DIARRHOEA
     Dosage: UNK
     Dates: start: 20070412
  4. GLUCOSE OXIDASE [Concomitant]
     Indication: ORAL PAIN
     Dosage: UNK
     Dates: start: 20070423
  5. OXYGEN [Concomitant]
     Indication: DRUG USE FOR UNKNOWN INDICATION

REACTIONS (1)
  - PNEUMONITIS CHEMICAL [None]
